FAERS Safety Report 17036427 (Version 1)
Quarter: 2019Q4

REPORT INFORMATION
  Report Type: Spontaneous
  Country: US (occurrence: US)
  Receive Date: 20191114
  Receipt Date: 20191114
  Transmission Date: 20200122
  Serious: No
  Sender: FDA-Public Use
  Company Number: None

PATIENT
  Age: 60 Year
  Sex: Female
  Weight: 67.5 kg

DRUGS (1)
  1. IBUPROFEN. [Suspect]
     Active Substance: IBUPROFEN
     Indication: PAIN IN EXTREMITY
     Route: 048
     Dates: start: 20190711, end: 20190711

REACTIONS (3)
  - Vomiting [None]
  - Feeling hot [None]
  - Dizziness [None]

NARRATIVE: CASE EVENT DATE: 20190711
